FAERS Safety Report 6165429-2 (Version None)
Quarter: 2009Q2

REPORT INFORMATION
  Report Type: 
  Country: None (occurrence: None)
  Receive Date: 20090423
  Receipt Date: 20090414
  Transmission Date: 20091009
  Serious: Yes (Hospitalization, Disabling)
  Sender: FDA-Public Use
  Company Number: US-MERCK-0805USA02824

PATIENT
  Age: 55 Year
  Sex: Female

DRUGS (5)
  1. FOSAMAX [Suspect]
     Indication: OSTEOPOROSIS
     Route: 048
     Dates: start: 19970101, end: 20010312
  2. FOSAMAX [Suspect]
     Route: 048
     Dates: start: 20010313, end: 20041001
  3. KEFLEX [Concomitant]
     Route: 065
     Dates: start: 19970101
  4. PROZAC [Concomitant]
     Route: 065
     Dates: start: 19970101
  5. DOXYCYCLINE [Concomitant]
     Route: 065
     Dates: start: 19960101

REACTIONS (15)
  - ANAEMIA [None]
  - BACK PAIN [None]
  - GINGIVAL BLEEDING [None]
  - HEADACHE [None]
  - INFECTION [None]
  - NAUSEA [None]
  - OBESITY [None]
  - ORAL PAIN [None]
  - OSTEOARTHRITIS [None]
  - OSTEONECROSIS [None]
  - RESORPTION BONE INCREASED [None]
  - SUBARACHNOID HAEMORRHAGE [None]
  - SWELLING [None]
  - TRANSIENT ISCHAEMIC ATTACK [None]
  - UPPER RESPIRATORY TRACT INFECTION [None]
